FAERS Safety Report 11227617 (Version 2)
Quarter: 2015Q3

REPORT INFORMATION
  Report Type: Spontaneous
  Country: US (occurrence: None)
  Receive Date: 20150626
  Receipt Date: 20150729
  Transmission Date: 20151125
  Serious: Yes (Hospitalization)
  Sender: FDA-Public Use
  Company Number: US-H14001-15-00969

PATIENT
  Age: 47 Year
  Sex: Female

DRUGS (1)
  1. INFUMORPH [Suspect]
     Active Substance: MORPHINE SULFATE
     Indication: PAIN
     Route: 037
     Dates: start: 20150529, end: 20150709

REACTIONS (5)
  - Drug ineffective [None]
  - Medical device pain [None]
  - Pain [None]
  - Constipation [None]
  - Medical device discomfort [None]

NARRATIVE: CASE EVENT DATE: 201505
